FAERS Safety Report 14113387 (Version 1)
Quarter: 2017Q4

REPORT INFORMATION
  Report Type: Spontaneous
  Country: US (occurrence: US)
  Receive Date: 20171021
  Receipt Date: 20171021
  Transmission Date: 20180321
  Serious: Yes (Hospitalization)
  Sender: FDA-Public Use
  Company Number: None

PATIENT
  Age: 84 Year
  Sex: Female
  Weight: 67.5 kg

DRUGS (19)
  1. NEURONTIN [Suspect]
     Active Substance: GABAPENTIN
     Indication: HEADACHE
     Dosage: ?          QUANTITY:1 CAPSULE(S);?
     Route: 048
     Dates: start: 20171009, end: 20171011
  2. BETA PACE [Concomitant]
  3. CLARITIN [Concomitant]
     Active Substance: LORATADINE
  4. FLONASE [Concomitant]
     Active Substance: FLUTICASONE PROPIONATE
  5. VITAMIN C [Concomitant]
     Active Substance: ASCORBIC ACID
  6. NEURONTIN [Suspect]
     Active Substance: GABAPENTIN
     Indication: FACIAL PAIN
     Dosage: ?          QUANTITY:1 CAPSULE(S);?
     Route: 048
     Dates: start: 20171009, end: 20171011
  7. SYNTHROID [Concomitant]
     Active Substance: LEVOTHYROXINE SODIUM
  8. TRICOR [Concomitant]
     Active Substance: FENOFIBRATE
  9. LIPITOR [Concomitant]
     Active Substance: ATORVASTATIN CALCIUM
  10. HYDRALZINE [Concomitant]
  11. DIAVON [Concomitant]
  12. FOLIC ACID. [Concomitant]
     Active Substance: FOLIC ACID
  13. VITAMIN B12 [Concomitant]
     Active Substance: CYANOCOBALAMIN
  14. XANAX [Concomitant]
     Active Substance: ALPRAZOLAM
  15. CALCIUMM [Concomitant]
  16. MAG DELAY [Concomitant]
  17. ASPIRIN. [Concomitant]
     Active Substance: ASPIRIN
  18. NEURONTIN [Suspect]
     Active Substance: GABAPENTIN
     Indication: EYE PAIN
     Dosage: ?          QUANTITY:1 CAPSULE(S);?
     Route: 048
     Dates: start: 20171009, end: 20171011
  19. MULTIVITAMIN [Concomitant]
     Active Substance: VITAMINS

REACTIONS (6)
  - Vision blurred [None]
  - Loss of personal independence in daily activities [None]
  - Feeling abnormal [None]
  - Blood pressure increased [None]
  - Diplopia [None]
  - Impaired driving ability [None]

NARRATIVE: CASE EVENT DATE: 20171011
